FAERS Safety Report 5828669-5 (Version None)
Quarter: 2008Q3

REPORT INFORMATION
  Report Type: 
  Country: None (occurrence: None)
  Receive Date: 20080731
  Receipt Date: 20080730
  Transmission Date: 20090109
  Serious: Yes (Life-Threatening, Other)
  Sender: FDA-Public Use
  Company Number: GB-BRISTOL-MYERS SQUIBB COMPANY-14279723

PATIENT
  Age: 3 Year
  Sex: Female

DRUGS (7)
  1. CYCLOPHOSPHAMIDE [Suspect]
     Indication: MEDULLOBLASTOMA
  2. ETOPOSIDE [Suspect]
     Indication: MEDULLOBLASTOMA
     Route: 048
  3. CISPLATIN [Suspect]
     Indication: MEDULLOBLASTOMA
  4. VINCRISTINE SULFATE [Suspect]
     Indication: MEDULLOBLASTOMA
  5. TEMOZOLOMIDE [Suspect]
     Indication: MEDULLOBLASTOMA
     Route: 048
  6. METHOTREXATE [Suspect]
     Indication: MEDULLOBLASTOMA
     Dosage: 9 G/M2. 400MG/KG ON 1, 3 AND 5; DURING 3RD AND 5TH CYCLE READMINISTERED AT 50% DOSE I.E 200 MG/KG
  7. GLUCARPIDASE [Concomitant]
     Indication: PREMEDICATION

REACTIONS (11)
  - ALANINE AMINOTRANSFERASE INCREASED [None]
  - ASCITES [None]
  - BLOOD BILIRUBIN INCREASED [None]
  - BONE MARROW FAILURE [None]
  - DRUG CLEARANCE DECREASED [None]
  - DRUG LEVEL INCREASED [None]
  - HEPATOMEGALY [None]
  - MUCOSAL INFLAMMATION [None]
  - PROTHROMBIN TIME PROLONGED [None]
  - RENAL FAILURE ACUTE [None]
  - VOMITING [None]
